FAERS Safety Report 13593847 (Version 1)
Quarter: 2017Q2

REPORT INFORMATION
  Report Type: Spontaneous
  Country: DE (occurrence: DE)
  Receive Date: 20170530
  Receipt Date: 20170530
  Transmission Date: 20170830
  Serious: Yes (Hospitalization)
  Sender: FDA-Public Use
  Company Number: DE-BIOGEN-2017BI00408526

PATIENT
  Age: 44 Year
  Sex: Female

DRUGS (3)
  1. JUNIK (BECLOMETASON) [Concomitant]
     Indication: ASTHMA
     Route: 065
  2. BEROTEC [Concomitant]
     Active Substance: FENOTEROL HYDROBROMIDE
     Indication: ASTHMA
     Dosage: AS NEEDED
     Route: 065
  3. TECFIDERA [Suspect]
     Active Substance: DIMETHYL FUMARATE
     Indication: MULTIPLE SCLEROSIS
     Dosage: MAINTENANCE DOSE
     Route: 048
     Dates: start: 201603, end: 20161220

REACTIONS (1)
  - Neuroendocrine carcinoma [Recovered/Resolved with Sequelae]

NARRATIVE: CASE EVENT DATE: 201612
